FAERS Safety Report 24088336 (Version 1)
Quarter: 2024Q3

REPORT INFORMATION
  Report Type: Spontaneous
  Country: US (occurrence: US)
  Receive Date: 20240715
  Receipt Date: 20240715
  Transmission Date: 20241017
  Serious: Yes (Hospitalization)
  Sender: DR REDDYS
  Company Number: US-DRL-USA-LIT/USA/24/0009980

PATIENT
  Age: 48 Year
  Sex: Male

DRUGS (5)
  1. MINOCYCLINE [Suspect]
     Active Substance: MINOCYCLINE HYDROCHLORIDE
     Indication: Pyomyositis
  2. VANCOMYCIN [Concomitant]
     Active Substance: VANCOMYCIN
     Indication: Pyomyositis
  3. PIPERACILLIN AND TAZOBACTAM [Concomitant]
     Active Substance: PIPERACILLIN SODIUM\TAZOBACTAM SODIUM
     Indication: Pyomyositis
  4. LINEZOLID [Concomitant]
     Active Substance: LINEZOLID
     Indication: Pyomyositis
  5. IMIPENEM [Concomitant]
     Active Substance: IMIPENEM
     Indication: Pyomyositis

REACTIONS (2)
  - Drug intolerance [Unknown]
  - Product use in unapproved indication [Unknown]
